FAERS Safety Report 25603897 (Version 1)
Quarter: 2025Q3

REPORT INFORMATION
  Report Type: Spontaneous
  Country: IL (occurrence: IL)
  Receive Date: 20250725
  Receipt Date: 20250725
  Transmission Date: 20251021
  Serious: Yes (Other)
  Sender: ALKEM
  Company Number: IL-ALKEM LABORATORIES LIMITED-IL-ALKEM-2025-07931

PATIENT
  Age: 10 Year

DRUGS (2)
  1. LEVETIRACETAM [Suspect]
     Active Substance: LEVETIRACETAM
     Indication: Partial seizures
     Route: 065
  2. LEVETIRACETAM [Suspect]
     Active Substance: LEVETIRACETAM
     Indication: Epilepsy

REACTIONS (6)
  - CSWS syndrome [Unknown]
  - Seizure [Unknown]
  - Condition aggravated [Unknown]
  - Myoclonus [Unknown]
  - Gait disturbance [Unknown]
  - Behaviour disorder [Unknown]
